FAERS Safety Report 5107192-X (Version None)
Quarter: 2006Q3

REPORT INFORMATION
  Report Type: 
  Country: None (occurrence: None)
  Receive Date: 20060913
  Receipt Date: 20060828
  Transmission Date: 20061208
  Serious: Yes (Hospitalization)
  Sender: FDA-Public Use
  Company Number: US200608005993

PATIENT
  Sex: Female

DRUGS (5)
  1. HUMATROPE [Suspect]
     Indication: HYPOPITUITARISM
     Dosage: SEE IMAGE
     Dates: start: 20060701, end: 20060801
  2. HUMATROPE [Suspect]
     Indication: HYPOPITUITARISM
     Dosage: SEE IMAGE
     Dates: start: 20020201
  3. HUMATROPEN (HUMATROPEN) PEN, REUSABLE [Concomitant]
  4. ANTIBIOTICS [Concomitant]
  5. ANTIFUNGALS [Concomitant]

REACTIONS (3)
  - MYOPIA [None]
  - PHARMACEUTICAL PRODUCT COMPLAINT [None]
  - PNEUMONIA FUNGAL [None]
